FAERS Safety Report 4397912-4 (Version None)
Quarter: 2004Q3

REPORT INFORMATION
  Report Type: 
  Country: None (occurrence: None)
  Receive Date: 20040714
  Receipt Date: 20040130
  Transmission Date: 20050211
  Serious: Yes (Hospitalization, Disabling, Other)
  Sender: FDA-Public Use
  Company Number: US-MERCK-0402USA00068

PATIENT
  Age: 50 Year
  Sex: Male
  Weight: 84 kg

DRUGS (13)
  1. PERCOCET [Concomitant]
     Indication: PAIN
     Route: 065
     Dates: start: 20010101
  2. ATENOLOL [Concomitant]
     Indication: HYPERTENSION
     Route: 065
     Dates: start: 20001201
  3. FOLIC ACID [Concomitant]
     Indication: ARTHRITIS
     Route: 065
  4. MOTRIN [Concomitant]
     Route: 065
  5. ISMO [Concomitant]
     Route: 065
  6. METHOTREXATE [Concomitant]
     Indication: RHEUMATOID ARTHRITIS
     Route: 065
     Dates: start: 19930101
  7. OXYCODONE HYDROCHLORIDE [Concomitant]
     Route: 065
  8. PREDNISONE [Concomitant]
     Route: 048
  9. VIOXX [Suspect]
     Indication: RHEUMATOID ARTHRITIS
     Route: 048
     Dates: start: 19990101, end: 20020412
  10. ZOCOR [Suspect]
     Route: 048
     Dates: start: 20010115
  11. TEMAZEPAM [Concomitant]
     Route: 065
  12. VITAMINS (UNSPECIFIED) [Concomitant]
     Route: 065
  13. AMBIEN [Concomitant]
     Route: 065

REACTIONS (18)
  - ANGINA PECTORIS [None]
  - ATRIAL FIBRILLATION [None]
  - BLOOD CHOLESTEROL INCREASED [None]
  - BRADYCARDIA [None]
  - CORONARY ARTERY DISEASE [None]
  - CORONARY ARTERY REOCCLUSION [None]
  - DEEP VEIN THROMBOSIS [None]
  - DIVERTICULITIS INTESTINAL HAEMORRHAGIC [None]
  - DIVERTICULUM [None]
  - HAEMORRHOIDS [None]
  - HYPERLIPIDAEMIA [None]
  - HYPERTENSION [None]
  - INTERVERTEBRAL DISC DEGENERATION [None]
  - MYOCARDIAL INFARCTION [None]
  - POLYP [None]
  - RENAL FAILURE CHRONIC [None]
  - RESPIRATORY DISTRESS [None]
  - SIGMOIDITIS [None]
